FAERS Safety Report 5762915-1 (Version None)
Quarter: 2008Q2

REPORT INFORMATION
  Report Type: 
  Country: None (occurrence: None)
  Receive Date: 20080609
  Receipt Date: 20080529
  Transmission Date: 20081010
  Serious: Yes (Other)
  Sender: FDA-Public Use
  Company Number: JP-PFIZER INC-2008045982

PATIENT
  Age: 75 Year
  Sex: Male

DRUGS (3)
  1. SOLU-MEDROL [Suspect]
     Dosage: DAILY DOSE:1000MG
     Route: 042
  2. LASIX [Concomitant]
  3. ROCEPHIN [Concomitant]

REACTIONS (1)
  - CEREBRAL INFARCTION [None]
